FAERS Safety Report 4427879-1 (Version None)
Quarter: 2004Q3

REPORT INFORMATION
  Report Type: 
  Country: None (occurrence: None)
  Receive Date: 20040813
  Receipt Date: 20040802
  Transmission Date: 20050211
  Serious: Yes (Death)
  Sender: FDA-Public Use
  Company Number: B0341577A

PATIENT
  Age: 4 Month

DRUGS (2)
  1. RETROVIR [Suspect]
  2. RETROVIR [Suspect]
     Dosage: TRANSPLACENTARY
     Route: 064

REACTIONS (2)
  - DRUG EXPOSURE DURING PREGNANCY [None]
  - PREMATURE BABY [None]
